FAERS Safety Report 5899698-0 (Version None)
Quarter: 2008Q3

REPORT INFORMATION
  Report Type: 
  Country: None (occurrence: None)
  Receive Date: 20080926
  Receipt Date: 20080912
  Transmission Date: 20090109
  Serious: Yes (Hospitalization)
  Sender: FDA-Public Use
  Company Number: US-ELI_LILLY_AND_COMPANY-US200809003488

PATIENT
  Sex: Female

DRUGS (8)
  1. FORTEO [Suspect]
     Indication: OSTEOPOROSIS
     Dosage: UNK, UNK
     Dates: start: 20070501, end: 20080731
  2. TOPROL-XL [Concomitant]
  3. ATACAND [Concomitant]
  4. CRESTOR [Concomitant]
  5. SINGULAIR [Concomitant]
  6. COUMADIN [Concomitant]
  7. SPIRONOLACTONE [Concomitant]
  8. DIGOXIN [Concomitant]

REACTIONS (5)
  - ATRIAL FIBRILLATION [None]
  - RENAL CELL CARCINOMA [None]
  - RENAL MASS [None]
  - STOMACH DISCOMFORT [None]
  - VISUAL ACUITY REDUCED [None]
